FAERS Safety Report 25561983 (Version 2)
Quarter: 2025Q4

REPORT INFORMATION
  Report Type: Spontaneous
  Country: IR (occurrence: IR)
  Receive Date: 20250716
  Receipt Date: 20251024
  Transmission Date: 20260118
  Serious: Yes (Death, Hospitalization, Other)
  Sender: PIRAMAL
  Company Number: IR-PIRAMAL CRITICAL CARE LIMITED-2025-PPL-000423

PATIENT

DRUGS (12)
  1. ISOFLURANE [Suspect]
     Active Substance: ISOFLURANE
     Indication: Maintenance of anaesthesia
     Dosage: 0.8 TO 1 MAC
  2. ISOFLURANE [Suspect]
     Active Substance: ISOFLURANE
     Dosage: 1.2 MAC/H
  3. MIDAZOLAM [Suspect]
     Active Substance: MIDAZOLAM
     Indication: General anaesthesia
     Dosage: 2 MILLIGRAM
  4. MIDAZOLAM [Suspect]
     Active Substance: MIDAZOLAM
     Dosage: 2 MILLIGRAM
  5. FENTANYL [Suspect]
     Active Substance: FENTANYL
     Indication: General anaesthesia
     Dosage: 200 MICROGRAM
  6. FENTANYL [Suspect]
     Active Substance: FENTANYL
     Dosage: 250 MICROGRAM
  7. PROPOFOL [Suspect]
     Active Substance: PROPOFOL
     Indication: General anaesthesia
     Dosage: 180 MILLIGRAM
  8. PROPOFOL [Suspect]
     Active Substance: PROPOFOL
     Indication: Maintenance of anaesthesia
     Dosage: 80 CC WITH THE DOSE OF 1 MAC/H
  9. LIDOCAINE [Suspect]
     Active Substance: LIDOCAINE
     Indication: General anaesthesia
     Dosage: 40 MILLIGRAM
  10. ATRACURIUM [Suspect]
     Active Substance: ATRACURIUM
     Indication: General anaesthesia
     Dosage: 50 MILLIGRAM
  11. ATRACURIUM [Suspect]
     Active Substance: ATRACURIUM
     Dosage: 30 MILLIGRAM
  12. REMIFENTANIL [Suspect]
     Active Substance: REMIFENTANIL
     Indication: Maintenance of anaesthesia
     Dosage: 1 MILLIGRAM

REACTIONS (3)
  - Hyperthermia malignant [Fatal]
  - Hyperkalaemia [Fatal]
  - Ventricular arrhythmia [Fatal]
